FAERS Safety Report 22324187 (Version 1)
Quarter: 2023Q2

REPORT INFORMATION
  Report Type: Spontaneous
  Country: PL (occurrence: PL)
  Receive Date: 20230516
  Receipt Date: 20230516
  Transmission Date: 20230722
  Serious: Yes (Other)
  Sender: FDA-Public Use
  Company Number: PL-SA-2018SA266957

PATIENT
  Age: 23 Year
  Sex: Female

DRUGS (5)
  1. BORTEZOMIB [Suspect]
     Active Substance: BORTEZOMIB
     Indication: Lymphoblast count increased
     Dosage: 1.3 MILLIGRAM/SQ. METER 1.3 MG/M2, DAY1,4,8,11
     Route: 065
  2. BORTEZOMIB [Suspect]
     Active Substance: BORTEZOMIB
     Dosage: 0.7 MILLIGRAM/SQ. METER (0.7 MG/M2 )
     Route: 065
  3. NILOTINIB [Concomitant]
     Active Substance: NILOTINIB
     Indication: Philadelphia chromosome positive
     Dosage: 800 MILLIGRAM, QD (800 MG, QD)
     Route: 065
  4. DEXAMETHASONE [Concomitant]
     Active Substance: DEXAMETHASONE
     Indication: Lymphoblast count increased
     Dosage: UNK (10-20 MG)
     Route: 065
  5. PEG/L-ASPARAGINASE [Concomitant]
     Active Substance: PEGASPARGASE
     Dosage: UNK, CYCLICAL, 1000 UNIT/M2
     Route: 065

REACTIONS (1)
  - Neurotoxicity [Unknown]
